FAERS Safety Report 5488957-1 (Version None)
Quarter: 2007Q4

REPORT INFORMATION
  Report Type: 
  Country: None (occurrence: None)
  Receive Date: 20071016
  Receipt Date: 20061001
  Transmission Date: 20080405
  Serious: Yes (Hospitalization)
  Sender: FDA-Public Use
  Company Number: 6038509

PATIENT
  Age: 63 Year
  Sex: Female

DRUGS (2)
  1. DIANBEN (METFORMIN) [Suspect]
     Indication: TYPE 2 DIABETES MELLITUS
     Dates: start: 20060101, end: 20060725
  2. GLYBURIDE [Suspect]
     Indication: TYPE 2 DIABETES MELLITUS
     Dosage: ORAL
     Route: 048
     Dates: start: 20060101, end: 20060725

REACTIONS (2)
  - CONFUSIONAL STATE [None]
  - HYPOGLYCAEMIA [None]
